FAERS Safety Report 10815750 (Version 1)
Quarter: 2015Q1

REPORT INFORMATION
  Report Type: Spontaneous
  Country: US (occurrence: US)
  Receive Date: 20150218
  Receipt Date: 20150218
  Transmission Date: 20150721
  Serious: No
  Sender: FDA-Public Use
  Company Number: US-ABBVIE-14K-163-1283774-00

PATIENT
  Age: 57 Year
  Sex: Female
  Weight: 44.04 kg

DRUGS (2)
  1. EVOXAC [Concomitant]
     Active Substance: CEVIMELINE HYDROCHLORIDE
     Indication: DRY MOUTH
  2. HUMIRA [Suspect]
     Active Substance: ADALIMUMAB
     Indication: RHEUMATOID ARTHRITIS
     Route: 065
     Dates: start: 20140828

REACTIONS (2)
  - Injection site erythema [Not Recovered/Not Resolved]
  - Injection site rash [Not Recovered/Not Resolved]

NARRATIVE: CASE EVENT DATE: 20140828
